FAERS Safety Report 7096293-5 (Version None)
Quarter: 2010Q4

REPORT INFORMATION
  Report Type: 
  Country: None (occurrence: None)
  Receive Date: 20101111
  Receipt Date: 20090702
  Transmission Date: 20110411
  Serious: No
  Sender: FDA-Public Use
  Company Number: US-KINGPHARMUSA00001-K200900788

PATIENT
  Sex: Female
  Weight: 46.259 kg

DRUGS (1)
  1. BICILLIN L-A [Suspect]
     Indication: SYPHILIS
     Dosage: 2 INJECTIONS IN ONE DAY
     Route: 030

REACTIONS (1)
  - BLOOD ALCOHOL ABNORMAL [None]
